FAERS Safety Report 10974988 (Version 1)
Quarter: 2015Q2

REPORT INFORMATION
  Report Type: Spontaneous
  Country: CN (occurrence: CN)
  Receive Date: 20150401
  Receipt Date: 20150401
  Transmission Date: 20150821
  Serious: Yes (Other)
  Sender: FDA-Public Use
  Company Number: CN-JNJFOC-20150323494

PATIENT

DRUGS (1)
  1. INFLIXIMAB, RECOMBINANT [Suspect]
     Active Substance: INFLIXIMAB
     Indication: ANKYLOSING SPONDYLITIS
     Dosage: 0, 2 AND 6??WEEKS, FOLLOWED BY EVERY 6 WEEKS
     Route: 042

REACTIONS (2)
  - Ventricular extrasystoles [Unknown]
  - Infusion related reaction [Unknown]
